FAERS Safety Report 7990790-3 (Version None)
Quarter: 2011Q4

REPORT INFORMATION
  Report Type: 
  Country: None (occurrence: None)
  Receive Date: 20111215
  Receipt Date: 20111130
  Transmission Date: 20120403
  Serious: Yes (Other)
  Sender: FDA-Public Use
  Company Number: 20110846

PATIENT
  Sex: Male

DRUGS (2)
  1. SODIUM BICARBONATE [Suspect]
     Dates: start: 20090901
  2. PRILOSEC [Suspect]

REACTIONS (3)
  - PNEUMONIA [None]
  - DYSPNOEA [None]
  - LUNG DISORDER [None]
